FAERS Safety Report 20653204 (Version 1)
Quarter: 2022Q1

REPORT INFORMATION
  Report Type: Spontaneous
  Country: US (occurrence: None)
  Receive Date: 20220328
  Receipt Date: 20220328
  Transmission Date: 20220423
  Serious: Yes (Other)
  Sender: FDA-Public Use
  Company Number: None

PATIENT
  Age: 46 Year
  Sex: Female
  Weight: 72.57 kg

DRUGS (1)
  1. REPATHA [Suspect]
     Active Substance: EVOLOCUMAB
     Indication: Hyperlipidaemia
     Dosage: OTHER QUANTITY : INJECTABLE;?FREQUENCY : EVERY OTHER WEEK;?
     Route: 058
     Dates: start: 20210508, end: 20210605

REACTIONS (8)
  - Headache [None]
  - Peripheral swelling [None]
  - Joint swelling [None]
  - Erythema [None]
  - Pain in extremity [None]
  - Oropharyngeal pain [None]
  - Rhinorrhoea [None]
  - Arthralgia [None]

NARRATIVE: CASE EVENT DATE: 20210522
